FAERS Safety Report 12195131 (Version 1)
Quarter: 2016Q1

REPORT INFORMATION
  Report Type: Spontaneous
  Country: FR (occurrence: FR)
  Receive Date: 20160321
  Receipt Date: 20160321
  Transmission Date: 20160526
  Serious: Yes (Other)
  Sender: FDA-Public Use
  Company Number: FR-PFIZER INC-2016156864

PATIENT
  Age: 86 Year
  Sex: Male

DRUGS (2)
  1. SUTENT [Suspect]
     Active Substance: SUNITINIB MALATE
     Dosage: 50 MG, DAILY
  2. SUTENT [Suspect]
     Active Substance: SUNITINIB MALATE
     Dosage: 37.5 MG, DAILY

REACTIONS (7)
  - Eye haemorrhage [Recovered/Resolved]
  - Insomnia [Unknown]
  - Pain in jaw [Unknown]
  - Gingival disorder [Unknown]
  - Fatigue [Unknown]
  - Lymphadenopathy [Unknown]
  - Gingival pain [Unknown]

NARRATIVE: CASE EVENT DATE: 201603
